FAERS Safety Report 8926018 (Version 1)
Quarter: 2012Q4

REPORT INFORMATION
  Report Type: 
  Country: RU (occurrence: RU)
  Receive Date: 20121126
  Receipt Date: 20121126
  Transmission Date: 20130627
  Serious: Yes (Hospitalization)
  Sender: FDA-Public Use
  Company Number: RU-BAYER-2012-122185

PATIENT
  Age: 69 Year
  Sex: Female

DRUGS (4)
  1. ASPIRIN [Suspect]
     Indication: FEVER
     Dosage: UNK
     Route: 048
     Dates: start: 20120729, end: 20120730
  2. CITRAMON P [Suspect]
     Indication: FEVER
     Dosage: UNK
     Route: 048
     Dates: start: 20120729, end: 20120730
  3. ERYNIT [Suspect]
     Indication: FEVER
     Dosage: UNK
     Route: 048
     Dates: start: 20120729, end: 20120730
  4. VALERIANA COMP [Concomitant]
     Indication: FEVER
     Dosage: UNK
     Dates: start: 20120729, end: 20120730

REACTIONS (7)
  - Dermatitis allergic [Recovered/Resolved]
  - Rash papular [Recovered/Resolved]
  - Rash papular [Recovered/Resolved]
  - Asthenia [Recovered/Resolved]
  - Pruritus [Recovered/Resolved]
  - Excoriation [Recovered/Resolved]
  - Skin exfoliation [Recovered/Resolved]
